FAERS Safety Report 11984662 (Version 1)
Quarter: 2016Q1

REPORT INFORMATION
  Report Type: Spontaneous
  Country: CN (occurrence: CN)
  Receive Date: 20160201
  Receipt Date: 20160201
  Transmission Date: 20160526
  Serious: Yes (Hospitalization, Other)
  Sender: FDA-Public Use
  Company Number: CN-GLAXOSMITHKLINE-CN2016GSK011224

PATIENT
  Age: 88 Year
  Sex: Male
  Weight: 62 kg

DRUGS (1)
  1. BACTROBAN [Suspect]
     Active Substance: MUPIROCIN\MUPIROCIN CALCIUM
     Indication: LIMB INJURY
     Dosage: 1 DF, BID (SMEARED AT 10:00 AM AND 20:00 )
     Route: 061
     Dates: start: 20150815, end: 20150815

REACTIONS (8)
  - Pruritus [Recovered/Resolved]
  - Rash erythematous [Recovered/Resolved]
  - Vomiting [Recovered/Resolved]
  - Ischaemia [Recovered/Resolved]
  - Rash papular [Recovered/Resolved]
  - Vertigo [Recovered/Resolved]
  - Drug hypersensitivity [Recovered/Resolved]
  - Rash [Recovered/Resolved]

NARRATIVE: CASE EVENT DATE: 20150815
